FAERS Safety Report 9328794 (Version 2)
Quarter: 2013Q2

REPORT INFORMATION
  Report Type: Spontaneous
  Country: DE (occurrence: DE)
  Receive Date: 20130604
  Receipt Date: 20130619
  Transmission Date: 20140414
  Serious: Yes (Life-Threatening, Hospitalization)
  Sender: FDA-Public Use
  Company Number: DE-BRISTOL-MYERS SQUIBB COMPANY-18934331

PATIENT
  Age: 70 Year
  Sex: Male
  Weight: 101 kg

DRUGS (6)
  1. BARACLUDE [Suspect]
     Indication: HEPATITIS B
     Route: 048
     Dates: start: 20070517, end: 20130419
  2. GRIPPOSTAD [Suspect]
     Indication: INFLUENZA
     Dates: start: 20130327, end: 20130405
  3. BROMHEXINE HCL [Concomitant]
     Indication: INFLUENZA
     Route: 048
     Dates: start: 20130327, end: 20130405
  4. VITAMIN C [Concomitant]
     Indication: INFLUENZA
     Dosage: 1DF: 2TABS, 1 TABS
     Route: 048
     Dates: start: 20130327, end: 20130405
  5. OLMESARTAN MEDOXOMIL [Concomitant]
     Indication: HYPERTENSION
     Route: 048
     Dates: start: 2005
  6. AMLODIPINE [Concomitant]
     Indication: HYPERTENSION
     Dates: start: 2005

REACTIONS (3)
  - Renal failure [Recovering/Resolving]
  - Renal tubular necrosis [Recovering/Resolving]
  - Influenza [Unknown]
